FAERS Safety Report 20894391 (Version 2)
Quarter: 2022Q4

REPORT INFORMATION
  Report Type: Spontaneous
  Country: JP (occurrence: JP)
  Receive Date: 20220531
  Receipt Date: 20221206
  Transmission Date: 20230113
  Serious: Yes (Other)
  Sender: FDA-Public Use
  Company Number: JP-JNJFOC-20220559743

PATIENT
  Age: 81 Year
  Sex: Female
  Weight: 59 kg

DRUGS (4)
  1. TREMFYA [Suspect]
     Active Substance: GUSELKUMAB
     Indication: Psoriasis
     Dosage: EVERY 4 TO 8 WEEKS
     Route: 058
     Dates: start: 20181002, end: 20220324
  2. TREMFYA [Suspect]
     Active Substance: GUSELKUMAB
  3. TREMFYA [Suspect]
     Active Substance: GUSELKUMAB
  4. MYSER [DIFLUPREDNATE] [Concomitant]
     Indication: Psoriasis
     Dosage: DOSE UNKNOWN
     Route: 061
     Dates: start: 20190416

REACTIONS (2)
  - Interstitial lung disease [Not Recovered/Not Resolved]
  - Rheumatoid arthritis [Unknown]

NARRATIVE: CASE EVENT DATE: 20220131
